FAERS Safety Report 10079544 (Version 2)
Quarter: 2014Q4

REPORT INFORMATION
  Report Type: Spontaneous
  Country: US (occurrence: US)
  Receive Date: 20140415
  Receipt Date: 20141226
  Transmission Date: 20150528
  Serious: Yes (Hospitalization, Other)
  Sender: FDA-Public Use
  Company Number: US-BAYER-2014-054954

PATIENT
  Age: 50 Year
  Sex: Female
  Weight: 110 kg

DRUGS (1)
  1. YAZ [Suspect]
     Active Substance: DROSPIRENONE\ETHINYL ESTRADIOL
     Dosage: UNK
     Dates: start: 2006, end: 2012

REACTIONS (6)
  - Injury [None]
  - Thrombosis [None]
  - Pain [None]
  - Deep vein thrombosis [None]
  - Cerebrovascular accident [None]
  - Pulmonary embolism [None]

NARRATIVE: CASE EVENT DATE: 2012
